FAERS Safety Report 17291542 (Version 1)
Quarter: 2020Q1

REPORT INFORMATION
  Report Type: Report from Study
  Country: US (occurrence: US)
  Receive Date: 20200121
  Receipt Date: 20200121
  Transmission Date: 20200409
  Serious: Yes (Other)
  Sender: FDA-Public Use
  Company Number: US-BAYER-2018-187032

PATIENT
  Age: 81 Year
  Sex: Male

DRUGS (1)
  1. NEXAVAR [Suspect]
     Active Substance: SORAFENIB
     Indication: THYROID CANCER
     Dosage: 400 MG, BID
     Route: 048
     Dates: start: 2008, end: 2018

REACTIONS (13)
  - Dyspnoea exertional [Not Recovered/Not Resolved]
  - Cough [Recovering/Resolving]
  - Oropharyngeal blistering [Recovering/Resolving]
  - Pleural effusion [Recovered/Resolved]
  - Hypertension [Recovered/Resolved]
  - Proteinuria [Recovered/Resolved]
  - Oedema [Recovering/Resolving]
  - Generalised oedema [Recovered/Resolved]
  - Swelling [Recovering/Resolving]
  - Renal impairment [Not Recovered/Not Resolved]
  - Aphonia [Not Recovered/Not Resolved]
  - Wheezing [Not Recovered/Not Resolved]
  - Hypercalcaemia [None]

NARRATIVE: CASE EVENT DATE: 201807
